FAERS Safety Report 21580239 (Version 4)
Quarter: 2024Q3

REPORT INFORMATION
  Report Type: Spontaneous
  Country: JP (occurrence: JP)
  Receive Date: 20221110
  Receipt Date: 20240809
  Transmission Date: 20241016
  Serious: Yes (Other)
  Sender: NOVARTIS
  Company Number: JP-002147023-NVSJ2022JP100636

PATIENT
  Sex: Female

DRUGS (1)
  1. AFINITOR [Suspect]
     Active Substance: EVEROLIMUS
     Indication: Small intestine neuroendocrine tumour
     Dosage: 10 MG
     Route: 048
     Dates: start: 202110, end: 202201

REACTIONS (5)
  - Platelet count decreased [Unknown]
  - Small intestine neuroendocrine tumour [Unknown]
  - Malignant neoplasm progression [Unknown]
  - Gastrointestinal haemorrhage [Unknown]
  - Haematemesis [Recovered/Resolved]
